FAERS Safety Report 25055564 (Version 1)
Quarter: 2025Q1

REPORT INFORMATION
  Report Type: Spontaneous
  Country: PR (occurrence: PR)
  Receive Date: 20250308
  Receipt Date: 20250308
  Transmission Date: 20250409
  Serious: No
  Sender: ROCHE
  Company Number: PR-ROCHE-10000226528

PATIENT
  Sex: Male

DRUGS (1)
  1. OBINUTUZUMAB [Suspect]
     Active Substance: OBINUTUZUMAB
     Indication: Chronic lymphocytic leukaemia
     Route: 065

REACTIONS (2)
  - Hypotension [Recovered/Resolved]
  - Syncope [Recovered/Resolved]
